FAERS Safety Report 9361337 (Version 1)
Quarter: 2013Q2

REPORT INFORMATION
  Report Type: Spontaneous
  Country: BR (occurrence: BR)
  Receive Date: 20130621
  Receipt Date: 20130621
  Transmission Date: 20140414
  Serious: Yes (Hospitalization)
  Sender: FDA-Public Use
  Company Number: BR-GENZYME-FABR-1003348

PATIENT
  Sex: Male

DRUGS (2)
  1. FABRAZYME [Suspect]
     Indication: FABRY^S DISEASE
     Dosage: UNK (4 VIALS)
     Route: 042
  2. AGALSIDASE ALFA [Suspect]
     Indication: FABRY^S DISEASE
     Dosage: UNK
     Route: 065

REACTIONS (2)
  - Meningitis [Unknown]
  - CSF neutrophil count positive [Unknown]
